FAERS Safety Report 6143151-6 (Version None)
Quarter: 2009Q2

REPORT INFORMATION
  Report Type: 
  Country: None (occurrence: None)
  Receive Date: 20090401
  Receipt Date: 20090323
  Transmission Date: 20091009
  Serious: Yes (Death)
  Sender: FDA-Public Use
  Company Number: 2009AP001241

PATIENT
  Age: 36 Year
  Sex: Female

DRUGS (6)
  1. CARBAMAZEPINE [Suspect]
  2. SOMA [Suspect]
  3. CELEXA [Suspect]
  4. ZYPREXA [Suspect]
  5. DEXTROPROPOXYPHENE [Suspect]
  6. PARACETAMOL [Suspect]

REACTIONS (1)
  - DRUG TOXICITY [None]
